FAERS Safety Report 9534939 (Version 1)
Quarter: 2013Q3

REPORT INFORMATION
  Report Type: Spontaneous
  Country: US (occurrence: US)
  Receive Date: 20130918
  Receipt Date: 20130918
  Transmission Date: 20140515
  Serious: Yes (Hospitalization)
  Sender: FDA-Public Use
  Company Number: 2013SP002663

PATIENT
  Sex: Female

DRUGS (4)
  1. LATUDA [Suspect]
     Indication: DISSOCIATIVE IDENTITY DISORDER
     Route: 048
     Dates: end: 201307
  2. LATUDA [Suspect]
     Indication: DEPRESSIVE SYMPTOM
     Route: 048
     Dates: end: 201307
  3. ZOLOFT [Suspect]
     Indication: PRODUCT USED FOR UNKNOWN INDICATION
     Dates: start: 201307, end: 2013
  4. GEODON /01487002/ [Suspect]
     Indication: PRODUCT USED FOR UNKNOWN INDICATION

REACTIONS (1)
  - Serotonin syndrome [Unknown]
